FAERS Safety Report 13786922 (Version 1)
Quarter: 2017Q3

REPORT INFORMATION
  Report Type: Not Available
  Country: HK (occurrence: HK)
  Receive Date: 20170725
  Receipt Date: 20170725
  Transmission Date: 20171127
  Serious: Yes (Congenital Anomaly)
  Sender: FDA-Public Use
  Company Number: HK-IDTAUSTRALIA-2017-HK-000001

PATIENT
  Age: 30 Year
  Sex: Female

DRUGS (1)
  1. CLARITHROMYCIN EXTENDED-RELEASE (NON-SPECIFIC) [Suspect]
     Active Substance: CLARITHROMYCIN
     Dosage: 500MG TWICE DAILY

REACTIONS (1)
  - Sirenomelia [Not Recovered/Not Resolved]
